FAERS Safety Report 18534969 (Version 1)
Quarter: 2020Q4

REPORT INFORMATION
  Report Type: Spontaneous
  Country: US (occurrence: US)
  Receive Date: 20201123
  Receipt Date: 20201123
  Transmission Date: 20210114
  Serious: Yes (Other)
  Sender: FDA-Public Use
  Company Number: US-PFIZER INC-2020455719

PATIENT
  Age: 49 Year
  Sex: Female
  Weight: 68 kg

DRUGS (9)
  1. PROPOFOL. [Concomitant]
     Active Substance: PROPOFOL
     Dosage: UNK (25MCG/KG PER MINUTE VIA IV AND THAT WAS CONTINUED FOR THE REMAINDER OF THE PROCEDURE)
     Route: 042
  2. FAMOTIDINE. [Concomitant]
     Active Substance: FAMOTIDINE
     Dosage: 20 MG, 2X/DAY
     Route: 042
  3. NORMAL SALINE [Concomitant]
     Active Substance: SODIUM CHLORIDE
     Dosage: UNK (INFUSING IV AT 125ML/HR FOR 24 HOURS PRIOR TO THE PROCEDURE)
  4. DEXAMETHASONE. [Concomitant]
     Active Substance: DEXAMETHASONE
     Dosage: 4 MG, 4X/DAY (EVERY 6 HOURS)
     Route: 042
  5. ROCURONIUM BROMIDE. [Suspect]
     Active Substance: ROCURONIUM BROMIDE
     Dosage: 50 MG (50 MINUTES LATER, TOTAL OF 150MG, IN 50MG INCREMENTS OVER 15 MINUTES)
     Route: 042
     Dates: start: 20201112
  6. VECURONIUM [Concomitant]
     Active Substance: VECURONIUM BROMIDE
     Dosage: 10 MG
     Route: 042
  7. ROCURONIUM BROMIDE. [Suspect]
     Active Substance: ROCURONIUM BROMIDE
     Indication: PARALYSIS
     Dosage: 50 MG
     Route: 042
     Dates: start: 20201112
  8. ROCURONIUM BROMIDE. [Suspect]
     Active Substance: ROCURONIUM BROMIDE
     Dosage: 50 MG (40 MINUTES LATER, RECEIVED ANOTHER 50MG)
     Route: 042
     Dates: start: 20201112
  9. LEVETIRACETAM. [Concomitant]
     Active Substance: LEVETIRACETAM
     Dosage: 500 MG, 2X/DAY
     Route: 048

REACTIONS (1)
  - Drug ineffective [Unknown]

NARRATIVE: CASE EVENT DATE: 20201112
